FAERS Safety Report 5615782-0 (Version None)
Quarter: 2008Q1

REPORT INFORMATION
  Report Type: 
  Country: None (occurrence: None)
  Receive Date: 20080201
  Receipt Date: 20080122
  Transmission Date: 20080703
  Serious: Yes (Death, Other)
  Sender: FDA-Public Use
  Company Number: 2008AP000239

PATIENT
  Age: 29 Year
  Sex: Male

DRUGS (5)
  1. PAROXETINE HCL [Suspect]
     Indication: DEPRESSION
     Dosage: 20 MG;PO; 10 MG;PO; 30 MG;PO;QD
     Route: 048
     Dates: start: 19941119
  2. PAROXETINE HCL [Suspect]
     Indication: DEPRESSION
     Dosage: 20 MG;PO; 10 MG;PO; 30 MG;PO;QD
     Route: 048
     Dates: start: 19990419
  3. PAROXETINE HCL [Suspect]
     Indication: DEPRESSION
     Dosage: 20 MG;PO; 10 MG;PO; 30 MG;PO;QD
     Route: 048
     Dates: start: 20040622
  4. PAROXETINE HCL [Suspect]
     Indication: DEPRESSION
     Dosage: 20 MG;PO; 10 MG;PO; 30 MG;PO;QD
     Route: 048
     Dates: start: 20041103
  5. PAROXETINE HCL [Suspect]
     Indication: DEPRESSION
     Dosage: 20 MG;PO; 10 MG;PO; 30 MG;PO;QD
     Route: 048
     Dates: start: 20050413

REACTIONS (22)
  - AGGRESSION [None]
  - ANGER [None]
  - CRYING [None]
  - DEPRESSED MOOD [None]
  - DIZZINESS [None]
  - DRUG WITHDRAWAL SYNDROME [None]
  - FACIAL SPASM [None]
  - HEADACHE [None]
  - HYPERHIDROSIS [None]
  - INFLUENZA LIKE ILLNESS [None]
  - INTENTIONAL SELF-INJURY [None]
  - IRRITABILITY [None]
  - MALAISE [None]
  - MOOD SWINGS [None]
  - MUSCULAR WEAKNESS [None]
  - NAUSEA [None]
  - NIGHT SWEATS [None]
  - NIGHTMARE [None]
  - PARAESTHESIA [None]
  - PARANOIA [None]
  - SLEEP DISORDER [None]
  - TREMOR [None]
